FAERS Safety Report 7289411-7 (Version None)
Quarter: 2011Q1

REPORT INFORMATION
  Report Type: 
  Country: None (occurrence: None)
  Receive Date: 20110211
  Receipt Date: 20110209
  Transmission Date: 20110831
  Serious: Yes (Hospitalization)
  Sender: FDA-Public Use
  Company Number: US-MEDIMMUNE-MEDI-0012459

PATIENT
  Sex: Male
  Weight: 5.952 kg

DRUGS (10)
  1. SODIUM BICARB [Concomitant]
  2. FLOVENT [Concomitant]
  3. MULTI-VITAMINS [Concomitant]
  4. SYNAGIS [Suspect]
     Route: 030
     Dates: start: 20101201, end: 20101201
  5. XOPENEX [Concomitant]
  6. DIURIL [Concomitant]
  7. ATROVENT [Concomitant]
  8. PREVACID [Concomitant]
  9. POTASSIUM [Concomitant]
  10. SPIRONOLACTONE [Concomitant]

REACTIONS (2)
  - PNEUMONIA [None]
  - ADENOVIRAL UPPER RESPIRATORY INFECTION [None]
